FAERS Safety Report 17619036 (Version 3)
Quarter: 2020Q2

REPORT INFORMATION
  Report Type: Spontaneous
  Country: US (occurrence: US)
  Receive Date: 20200402
  Receipt Date: 20200504
  Transmission Date: 20200713
  Serious: Yes (Other)
  Sender: FDA-Public Use
  Company Number: US-BAUSCH-BL-2020-009513

PATIENT
  Age: 66 Year
  Sex: Male
  Weight: 63.5 kg

DRUGS (4)
  1. PHOSPHOLINE IODIDE [Concomitant]
     Active Substance: ECHOTHIOPHATE IODIDE
     Indication: GLAUCOMA
     Dosage: HIS LEFT EYE
     Route: 047
  2. PHOSPHOLINE IODIDE [Concomitant]
     Active Substance: ECHOTHIOPHATE IODIDE
     Dosage: HIS RIGHT EYE
     Route: 047
  3. ROCKLATAN [Concomitant]
     Active Substance: LATANOPROST\NETARSUDIL MESYLATE
     Indication: GLAUCOMA
     Dosage: ONE DROP IN EACH EYE
     Route: 047
  4. DORZOLAMIDE HYDROCHLORIDE AND TIMOLOL MALEATE OPHTHALMIC SOLN 2%/0.5% [Suspect]
     Active Substance: DORZOLAMIDE HYDROCHLORIDE\TIMOLOL MALEATE
     Indication: GLAUCOMA
     Dosage: 22.3 MG WITH 6.8MG/ML,IN EACH EYE, 10ML BOTTLE; 2 PERCENT/0.5 PERCENT
     Route: 047

REACTIONS (2)
  - Intraocular pressure increased [Unknown]
  - Therapeutic product effect incomplete [Unknown]
